FAERS Safety Report 8380668-8 (Version None)
Quarter: 2012Q2

REPORT INFORMATION
  Report Type: 
  Country: None (occurrence: None)
  Receive Date: 20120523
  Receipt Date: 20120521
  Transmission Date: 20120825
  Serious: Yes (Other)
  Sender: FDA-Public Use
  Company Number: US-ROCHE-1007198

PATIENT
  Sex: Female

DRUGS (1)
  1. ZELBORAF [Suspect]
     Indication: PRODUCT USED FOR UNKNOWN INDICATION
     Route: 065

REACTIONS (14)
  - FATIGUE [None]
  - MASS [None]
  - PRURITUS [None]
  - ARTHRALGIA [None]
  - SKIN MASS [None]
  - VISION BLURRED [None]
  - SWELLING [None]
  - CONSTIPATION [None]
  - ACNE [None]
  - MUSCULAR WEAKNESS [None]
  - NAUSEA [None]
  - ALOPECIA [None]
  - DISEASE PROGRESSION [None]
  - MYALGIA [None]
